FAERS Safety Report 5303761-2 (Version None)
Quarter: 2007Q2

REPORT INFORMATION
  Report Type: 
  Country: None (occurrence: None)
  Receive Date: 20070420
  Receipt Date: 20070411
  Transmission Date: 20071010
  Serious: Yes (Other)
  Sender: FDA-Public Use
  Company Number: JP-GENENTECH-240057

PATIENT

DRUGS (1)
  1. BEVACIZUMAB [Suspect]
     Indication: CHOROIDAL NEOVASCULARISATION
     Dosage: 1 MG, UNK
     Route: 031

REACTIONS (1)
  - CONJUNCTIVAL OEDEMA [None]
